FAERS Safety Report 17859766 (Version 1)
Quarter: 2020Q2

REPORT INFORMATION
  Report Type: Spontaneous
  Country: US (occurrence: US)
  Receive Date: 20200604
  Receipt Date: 20200604
  Transmission Date: 20200714
  Serious: No
  Sender: FDA-Public Use
  Company Number: US-PFIZER INC-2020218279

PATIENT
  Age: 69 Year
  Sex: Female

DRUGS (1)
  1. ADVIL LIQUI-GELS [Suspect]
     Active Substance: IBUPROFEN
     Indication: NONINFECTIVE GINGIVITIS
     Dosage: 200 MG, 12 HOURS APART

REACTIONS (3)
  - Anxiety [Unknown]
  - Tongue discomfort [Unknown]
  - Chapped lips [Unknown]
